FAERS Safety Report 15079919 (Version 2)
Quarter: 2018Q3

REPORT INFORMATION
  Report Type: Spontaneous
  Country: US (occurrence: US)
  Receive Date: 20180627
  Receipt Date: 20180712
  Transmission Date: 20181010
  Serious: No
  Sender: FDA-Public Use
  Company Number: US-009507513-1806USA007558

PATIENT
  Age: 16 Year
  Sex: Female
  Weight: 66.21 kg

DRUGS (2)
  1. NUVARING [Suspect]
     Active Substance: ETHINYL ESTRADIOL\ETONOGESTREL
     Indication: POLYCYSTIC OVARIES
     Dosage: 1 RING, 3 WEEKS IN, 1 WEEK OUT
     Route: 067
     Dates: start: 20171218, end: 201806
  2. NUVARING [Suspect]
     Active Substance: ETHINYL ESTRADIOL\ETONOGESTREL
     Indication: DYSMENORRHOEA
     Dosage: 1 RING, 3 WEEKS IN, 1 WEEK OUT
     Route: 067
     Dates: start: 201806

REACTIONS (3)
  - Product use in unapproved indication [Unknown]
  - Medical device site discomfort [Recovered/Resolved]
  - Product quality issue [Recovered/Resolved]

NARRATIVE: CASE EVENT DATE: 20171218
